FAERS Safety Report 17745696 (Version 3)
Quarter: 2020Q3

REPORT INFORMATION
  Report Type: Spontaneous
  Country: US (occurrence: US)
  Receive Date: 20200505
  Receipt Date: 20200702
  Transmission Date: 20201102
  Serious: Yes (Other)
  Sender: FDA-Public Use
  Company Number: US-JNJFOC-20200500592

PATIENT
  Sex: Male

DRUGS (4)
  1. XARELTO [Suspect]
     Active Substance: RIVAROXABAN
     Indication: PERIPHERAL ARTERIAL OCCLUSIVE DISEASE
     Route: 048
     Dates: start: 2020
  2. CORTISOL                           /00028601/ [Concomitant]
     Active Substance: HYDROCORTISONE
     Indication: BACK PAIN
  3. PLAVIX [Suspect]
     Active Substance: CLOPIDOGREL BISULFATE
     Indication: PRODUCT USED FOR UNKNOWN INDICATION
  4. XARELTO [Suspect]
     Active Substance: RIVAROXABAN
     Indication: CARDIOVASCULAR DISORDER
     Dosage: IN THE EVENING
     Route: 048
     Dates: start: 202004, end: 2020

REACTIONS (5)
  - Rectal haemorrhage [Unknown]
  - Wound haemorrhage [Recovering/Resolving]
  - Skin haemorrhage [Unknown]
  - Peripheral swelling [Recovering/Resolving]
  - Chromaturia [Unknown]
